FAERS Safety Report 6391642-5 (Version None)
Quarter: 2009Q4

REPORT INFORMATION
  Report Type: 
  Country: None (occurrence: None)
  Receive Date: 20091007
  Receipt Date: 20090926
  Transmission Date: 20100525
  Serious: Yes (Other)
  Sender: FDA-Public Use
  Company Number: US-AVENTIS-200918731US

PATIENT
  Sex: Male

DRUGS (2)
  1. LANTUS [Suspect]
     Route: 058
     Dates: start: 20090701
  2. AVELOX [Concomitant]
     Dates: start: 20090901

REACTIONS (6)
  - GAIT DISTURBANCE [None]
  - HYPERHIDROSIS [None]
  - HYPOGLYCAEMIA [None]
  - MALAISE [None]
  - SLUGGISHNESS [None]
  - TREMOR [None]
